FAERS Safety Report 20434127 (Version 2)
Quarter: 2022Q1

REPORT INFORMATION
  Report Type: Spontaneous
  Country: US (occurrence: US)
  Receive Date: 20220206
  Receipt Date: 20220206
  Transmission Date: 20220423
  Serious: No
  Sender: FDA-Public Use
  Company Number: US-NOVARTISTESTPH-NVSC2022US023588

PATIENT

DRUGS (1)
  1. LUTATHERA [Suspect]
     Active Substance: LUTETIUM OXODOTREOTIDE LU-177
     Indication: Gastroenteropancreatic neuroendocrine tumour disease
     Dosage: 7400 MBQ (ONCE EVERY 8 WEEKS FOR A TOTAL OF 4)
     Route: 042
     Dates: start: 20211104, end: 20220107

REACTIONS (1)
  - White blood cell count decreased [Not Recovered/Not Resolved]

NARRATIVE: CASE EVENT DATE: 20220201
